FAERS Safety Report 18459146 (Version 2)
Quarter: 2020Q4

REPORT INFORMATION
  Report Type: Report from Study
  Country: NL (occurrence: NL)
  Receive Date: 20201103
  Receipt Date: 20201109
  Transmission Date: 20210114
  Serious: Yes (Other)
  Sender: FDA-Public Use
  Company Number: NL-MYLANLABS-2020M1090000

PATIENT
  Age: 41 Year
  Sex: Female
  Weight: 55 kg

DRUGS (7)
  1. GLATIRAMEERACETAAT MYLAN 40 MG/ML [Suspect]
     Active Substance: GLATIRAMER ACETATE
     Indication: MULTIPLE SCLEROSIS
     Dosage: 40 MILLIGRAM, 3XW
     Route: 058
     Dates: start: 201807, end: 20201021
  2. DIAZEPAM. [Concomitant]
     Active Substance: DIAZEPAM
     Indication: ANXIETY
     Dosage: 1X PER DAY WHEN NECESSARY
     Route: 054
     Dates: start: 2019, end: 2019
  3. HYDROXOCOBALAMINE [Concomitant]
     Active Substance: HYDROXOCOBALAMIN
     Indication: VITAMIN B12 DEFICIENCY
     Dosage: 1X PER 2 WEEKS 1 INJECTION
     Route: 030
  4. FOLIC ACID. [Concomitant]
     Active Substance: FOLIC ACID
     Indication: PRODUCT USED FOR UNKNOWN INDICATION
     Dosage: 5 MILLIGRAM, Q2W
  5. CLEMASTINE [Concomitant]
     Active Substance: CLEMASTINE
     Indication: FOOD ALLERGY
     Dosage: 1X1 TABLET
     Route: 048
  6. COLECALCIFEROL [Concomitant]
     Active Substance: CHOLECALCIFEROL
     Indication: VITAMIN D DEFICIENCY
     Dosage: 1X PER MONTH 3 AMPOULES
     Route: 048
  7. NEXIUM [Concomitant]
     Active Substance: ESOMEPRAZOLE MAGNESIUM
     Indication: OESOPHAGEAL STENOSIS
     Dosage: 1 DOSAGE FORM, BID

REACTIONS (3)
  - Multiple sclerosis relapse [Not Recovered/Not Resolved]
  - Injection site induration [Recovering/Resolving]
  - Therapeutic product effect incomplete [Recovered/Resolved]

NARRATIVE: CASE EVENT DATE: 2020
